FAERS Safety Report 17570784 (Version 1)
Quarter: 2020Q1

REPORT INFORMATION
  Report Type: Report from Study
  Country: IL (occurrence: IL)
  Receive Date: 20200323
  Receipt Date: 20200323
  Transmission Date: 20200409
  Serious: Yes (Hospitalization, Other)
  Sender: FDA-Public Use
  Company Number: NVSC2019IL060646

PATIENT
  Age: 59 Year
  Sex: Female
  Weight: 75 kg

DRUGS (6)
  1. ERIBULIN [Suspect]
     Active Substance: ERIBULIN
     Indication: PRODUCT USED FOR UNKNOWN INDICATION
     Route: 065
  2. BYL719 [Suspect]
     Active Substance: ALPELISIB
     Dosage: 200 MG
     Route: 048
  3. FASLODEX [Concomitant]
     Active Substance: FULVESTRANT
     Indication: PRODUCT USED FOR UNKNOWN INDICATION
     Route: 065
  4. BYL719 [Suspect]
     Active Substance: ALPELISIB
     Dosage: 250 MG, MID JAN
     Route: 048
     Dates: end: 20200302
  5. BYL719 [Suspect]
     Active Substance: ALPELISIB
     Indication: BREAST CANCER METASTATIC
     Dosage: 250 MG
     Route: 048
     Dates: start: 20191123, end: 20200128
  6. BYL719 [Suspect]
     Active Substance: ALPELISIB
     Dosage: 200 MG
     Route: 048

REACTIONS (7)
  - Seizure [Unknown]
  - Metastases to central nervous system [Unknown]
  - Hyperglycaemia [Recovering/Resolving]
  - Breast cancer metastatic [Unknown]
  - Malignant neoplasm progression [Unknown]
  - Malignant pleural effusion [Unknown]
  - Metastases to meninges [Unknown]

NARRATIVE: CASE EVENT DATE: 20191128
